FAERS Safety Report 7446113-1 (Version None)
Quarter: 2011Q2

REPORT INFORMATION
  Report Type: 
  Country: None (occurrence: None)
  Receive Date: 20110429
  Receipt Date: 20110425
  Transmission Date: 20111010
  Serious: Yes (Hospitalization, Other)
  Sender: FDA-Public Use
  Company Number: A0911262A

PATIENT
  Age: 74 Year
  Sex: Male

DRUGS (7)
  1. XOPENEX [Concomitant]
     Route: 055
  2. PROMACTA [Suspect]
     Dosage: 25MG ALTERNATE DAYS
     Route: 048
     Dates: start: 20091203, end: 20101220
  3. ROMIPLOSTIM [Concomitant]
     Indication: IDIOPATHIC THROMBOCYTOPENIC PURPURA
     Dates: start: 20090611
  4. BUDESONIDE [Concomitant]
     Route: 055
  5. UNKNOWN [Concomitant]
  6. IMMUNE GLOBULIN INTRAVENOUS (HUMAN) [Concomitant]
     Indication: IDIOPATHIC THROMBOCYTOPENIC PURPURA
     Dates: start: 20090306
  7. RITUXIMAB [Concomitant]
     Indication: IDIOPATHIC THROMBOCYTOPENIC PURPURA
     Dates: start: 20090326

REACTIONS (4)
  - ASTHMA [None]
  - PRURITUS [None]
  - PNEUMONIA [None]
  - FATIGUE [None]
